FAERS Safety Report 4922385-X (Version None)
Quarter: 2006Q1

REPORT INFORMATION
  Report Type: 
  Country: None (occurrence: None)
  Receive Date: 20060224
  Receipt Date: 20051012
  Transmission Date: 20060701
  Serious: Yes (Hospitalization)
  Sender: FDA-Public Use
  Company Number: US-MERCK-0510USA06929

PATIENT
  Age: 66 Year
  Sex: Female
  Weight: 66 kg

DRUGS (5)
  1. VIOXX [Suspect]
     Indication: RHEUMATOID ARTHRITIS
     Route: 048
     Dates: start: 20000217, end: 20020721
  2. ASPIRIN [Concomitant]
     Indication: CEREBROVASCULAR ACCIDENT PROPHYLAXIS
     Route: 065
     Dates: start: 20020101
  3. POTASSIUM CHLORIDE [Concomitant]
     Indication: HYPOKALAEMIA
     Route: 065
  4. EVISTA [Concomitant]
     Indication: OSTEOPOROSIS
     Route: 065
  5. DIURETIC (UNSPECIFIED) [Concomitant]
     Route: 065

REACTIONS (4)
  - DEEP VEIN THROMBOSIS [None]
  - HYPERTENSION [None]
  - SUPRAPUBIC PAIN [None]
  - TENSION HEADACHE [None]
